FAERS Safety Report 13672106 (Version 1)
Quarter: 2017Q2

REPORT INFORMATION
  Report Type: Spontaneous
  Country: US (occurrence: US)
  Receive Date: 20170621
  Receipt Date: 20170621
  Transmission Date: 20170830
  Serious: Yes (Other)
  Sender: FDA-Public Use
  Company Number: US-AUROBINDO-AUR-APL-2017-33151

PATIENT
  Age: 11 Year
  Sex: Male
  Weight: 30 kg

DRUGS (8)
  1. ROCURONIUM [Concomitant]
     Active Substance: ROCURONIUM BROMIDE
     Indication: GENERAL ANAESTHESIA
  2. FENTANYL. [Concomitant]
     Active Substance: FENTANYL
     Indication: GENERAL ANAESTHESIA
     Dosage: 60 MCG, UNK
     Route: 065
  3. CLONIDINE. [Concomitant]
     Active Substance: CLONIDINE
     Indication: ATTENTION DEFICIT/HYPERACTIVITY DISORDER
     Dosage: 0.1 MG, UNK
     Route: 065
  4. FENTANYL. [Concomitant]
     Active Substance: FENTANYL
  5. ARIPIPRAZOLE. [Suspect]
     Active Substance: ARIPIPRAZOLE
     Indication: ATTENTION DEFICIT/HYPERACTIVITY DISORDER
     Dosage: 5 MG, DAILY
     Route: 065
  6. METHYLPHENIDATE. [Suspect]
     Active Substance: METHYLPHENIDATE
     Indication: ATTENTION DEFICIT/HYPERACTIVITY DISORDER
     Dosage: 36 MG, DAILY
     Route: 065
  7. PROPOFOL. [Suspect]
     Active Substance: PROPOFOL
     Indication: GENERAL ANAESTHESIA
     Dosage: 120 MG, UNK
     Route: 065
  8. ROCURONIUM [Concomitant]
     Active Substance: ROCURONIUM BROMIDE
     Indication: GENERAL ANAESTHESIA
     Dosage: 20 MG, UNK
     Route: 065

REACTIONS (3)
  - Oromandibular dystonia [Recovered/Resolved]
  - Trismus [Recovered/Resolved]
  - Discomfort [Recovered/Resolved]
